FAERS Safety Report 26137661 (Version 1)
Quarter: 2025Q4

REPORT INFORMATION
  Report Type: Report from Study
  Country: US (occurrence: US)
  Receive Date: 20251209
  Receipt Date: 20251209
  Transmission Date: 20260118
  Serious: Yes (Other)
  Sender: ABBVIE
  Company Number: US-ABBVIE-6457578

PATIENT
  Age: 69 Year
  Sex: Male

DRUGS (3)
  1. CREON [Suspect]
     Active Substance: PANCRELIPASE AMYLASE\PANCRELIPASE LIPASE\PANCRELIPASE PROTEASE
     Indication: Pancreatic failure
     Dosage: LAST ADMIN:2025
     Route: 048
     Dates: start: 20250226
  2. CREON [Suspect]
     Active Substance: PANCRELIPASE AMYLASE\PANCRELIPASE LIPASE\PANCRELIPASE PROTEASE
     Indication: Pancreatic failure
     Dosage: FIRST ADMIN: 2025
     Route: 048
  3. CREON [Suspect]
     Active Substance: PANCRELIPASE AMYLASE\PANCRELIPASE LIPASE\PANCRELIPASE PROTEASE
     Indication: Pancreatic failure
     Dosage: FIRST AND LAST ADMIN: 2025
     Route: 048

REACTIONS (9)
  - Gastric operation [Unknown]
  - Pancreatic failure [Unknown]
  - Diabetes mellitus [Unknown]
  - Intestinal operation [Unknown]
  - Pancreatic operation [Unknown]
  - Liver operation [Unknown]
  - Gallbladder operation [Unknown]
  - Oesophageal operation [Unknown]
  - Pancreatic carcinoma [Unknown]

NARRATIVE: CASE EVENT DATE: 20250101
